FAERS Safety Report 8434735 (Version 3)
Quarter: 2014Q1

REPORT INFORMATION
  Report Type: Spontaneous
  Country: US (occurrence: US)
  Receive Date: 20120301
  Receipt Date: 20140123
  Transmission Date: 20141002
  Serious: Yes (Hospitalization)
  Sender: FDA-Public Use
  Company Number: US-BAYER-2012-020175

PATIENT
  Age: 36 Year
  Sex: Female
  Weight: 75.74 kg

DRUGS (16)
  1. YASMIN [Suspect]
     Dosage: UNK
     Dates: start: 2005, end: 201009
  2. OCELLA [Suspect]
     Dosage: UNK
     Dates: start: 2005, end: 201009
  3. YAZ [Suspect]
  4. IBUPROFEN [Concomitant]
     Indication: PAIN
     Dosage: 400 MG, PRN
     Dates: start: 2009
  5. IBUPROFEN [Concomitant]
     Indication: HEADACHE
     Dosage: 800 MG, PRN
     Dates: start: 2009
  6. IBUPROFEN [Concomitant]
     Indication: MIGRAINE
  7. SUMATRIPTAN [Concomitant]
     Indication: MIGRAINE
     Dosage: UNK
     Dates: start: 200911, end: 201009
  8. SIMVASTATIN [Concomitant]
     Indication: BLOOD CHOLESTEROL INCREASED
     Dosage: UNK
     Dates: start: 200911, end: 201009
  9. OMEPRAZOLE [Concomitant]
     Indication: GASTRIC DISORDER
     Dosage: UNK
     Dates: start: 2008
  10. FIORICET [Concomitant]
     Indication: MIGRAINE
  11. BETAMETHASONE W/CLOTRIMAZOLE [Concomitant]
     Dosage: 0.05 % APPLY TWICE DAILY AS NEEDED
     Route: 061
     Dates: start: 20090916
  12. OXYCODONE/APAP [Concomitant]
     Indication: PAIN
     Dosage: 5-325, ONE TABLET EVERY SIX HOURS
     Dates: start: 20100717
  13. ANTIVERT [Concomitant]
     Dosage: 25 MG, UNK
  14. DETROL LA [Concomitant]
     Dosage: 4 MG, UNK
  15. ELMIRON [Concomitant]
     Dosage: 100 MG, UNK
  16. CLOTRIMAZOLE -BETAMETHAZONE [Concomitant]
     Dosage: 1-0.05%

REACTIONS (8)
  - Gallbladder disorder [None]
  - Gallbladder disorder [None]
  - Cholecystitis chronic [None]
  - Abdominal pain [None]
  - Inflammation [None]
  - Nausea [None]
  - Vomiting [None]
  - Migraine [None]
